FAERS Safety Report 19292914 (Version 1)
Quarter: 2021Q2

REPORT INFORMATION
  Report Type: Spontaneous
  Country: US (occurrence: US)
  Receive Date: 20210524
  Receipt Date: 20210524
  Transmission Date: 20210717
  Serious: No
  Sender: FDA-Public Use
  Company Number: US-TEVA-2021-US-1911405

PATIENT
  Sex: Female

DRUGS (2)
  1. PREGABALIN ACTAVIS [Suspect]
     Active Substance: PREGABALIN
     Route: 065
     Dates: start: 202104
  2. PREGABALIN ACTAVIS [Suspect]
     Active Substance: PREGABALIN
     Route: 065

REACTIONS (4)
  - Expired product administered [Unknown]
  - Chest pain [Unknown]
  - Dysphonia [Unknown]
  - Cough [Unknown]

NARRATIVE: CASE EVENT DATE: 202104
